FAERS Safety Report 6087897-7 (Version None)
Quarter: 2009Q1

REPORT INFORMATION
  Report Type: 
  Country: None (occurrence: None)
  Receive Date: 20090223
  Receipt Date: 20090219
  Transmission Date: 20090719
  Serious: No
  Sender: FDA-Public Use
  Company Number: US-B.I. PHARMACEUTICALS,INC./RIDGEFIELD-2009-BP-01603BP

PATIENT
  Age: 87 Year
  Sex: Male

DRUGS (15)
  1. COMBIVENT [Suspect]
     Indication: CHRONIC OBSTRUCTIVE PULMONARY DISEASE
     Route: 055
     Dates: start: 20090128
  2. COUMADIN [Concomitant]
     Indication: ATRIAL FIBRILLATION
  3. PLAVIX [Concomitant]
     Indication: CARDIAC DISORDER
     Dosage: 75MG
  4. FLOMAX [Concomitant]
     Indication: BENIGN PROSTATIC HYPERPLASIA
  5. DOXEPIN HCL [Concomitant]
     Indication: INSOMNIA
  6. XALATAN [Concomitant]
     Indication: GLAUCOMA
  7. XANAX [Concomitant]
     Indication: ANXIETY
  8. NIASPAN [Concomitant]
     Indication: BLOOD CHOLESTEROL
  9. PAXIL [Concomitant]
     Indication: ANXIETY
     Dosage: 10MG
  10. KLOR-CON [Concomitant]
     Dosage: 20MG
     Route: 048
  11. RENEXA [Concomitant]
     Indication: ANGINA PECTORIS
  12. LASIX [Concomitant]
     Indication: OEDEMA
     Dosage: 20MG
     Route: 048
  13. LASIX [Concomitant]
     Indication: HYPERTENSION
  14. VITAMIN B COMPLEX CAP [Concomitant]
     Indication: BLOOD FOLATE DECREASED
  15. MULTI-VITAMIN [Concomitant]

REACTIONS (2)
  - DIZZINESS [None]
  - INAPPROPRIATE SCHEDULE OF DRUG ADMINISTRATION [None]
